FAERS Safety Report 5379164-1 (Version None)
Quarter: 2007Q3

REPORT INFORMATION
  Report Type: 
  Country: None (occurrence: None)
  Receive Date: 20070705
  Receipt Date: 20070625
  Transmission Date: 20080115
  Serious: Yes (Death)
  Sender: FDA-Public Use
  Company Number: HR-BRISTOL-MYERS SQUIBB COMPANY-13825492

PATIENT
  Age: 44 Year
  Sex: Male

DRUGS (9)
  1. ANATENSOL [Suspect]
     Dosage: INTRAMUSCULAR DEPOT INJECTIONS OF FLUPHENAZINE 25MG TWICE MONTHLY, ORAL FLUPHENAZINE 40 MG/DAY,
  2. FLUPHENAZINE DECANOATE [Interacting]
  3. HALOPERIDOL [Interacting]
     Route: 048
  4. PAROXETINE HCL [Interacting]
     Route: 048
  5. OLANZAPINE [Interacting]
     Route: 048
  6. ALPRAZOLAM [Concomitant]
  7. BIPERIDEN HYDROCHLORIDE TAB [Concomitant]
  8. BROMAZEPAM [Concomitant]
  9. DIAZEPAM [Concomitant]

REACTIONS (5)
  - DRUG INTERACTION [None]
  - HYPERGLYCAEMIA [None]
  - HYPONATRAEMIA [None]
  - INAPPROPRIATE ANTIDIURETIC HORMONE SECRETION [None]
  - PANCREATITIS HAEMORRHAGIC [None]
